FAERS Safety Report 16789442 (Version 1)
Quarter: 2019Q3

REPORT INFORMATION
  Report Type: Spontaneous
  Country: GR (occurrence: GR)
  Receive Date: 20190910
  Receipt Date: 20190910
  Transmission Date: 20191005
  Serious: Yes (Death)
  Sender: FDA-Public Use
  Company Number: GR-ELI_LILLY_AND_COMPANY-GR201909002623

PATIENT
  Age: 73 Year
  Sex: Female

DRUGS (4)
  1. REMERON [Concomitant]
     Active Substance: MIRTAZAPINE
     Dosage: UNK, UNKNOWN
     Route: 048
  2. ZYPREXA [Suspect]
     Active Substance: OLANZAPINE
     Indication: BIPOLAR DISORDER
     Dosage: 10 MG, DAILY
     Route: 048
     Dates: start: 20010511, end: 20051020
  3. FRUMIL [Concomitant]
     Active Substance: AMILORIDE HYDROCHLORIDE\FUROSEMIDE
     Dosage: UNK, UNKNOWN
     Route: 048
     Dates: end: 20051020
  4. SELECTOL [Concomitant]
     Active Substance: CELIPROLOL
     Dosage: UNK, UNKNOWN
     Route: 048
     Dates: end: 20051020

REACTIONS (1)
  - Cerebrovascular accident [Fatal]
